FAERS Safety Report 6438282-7 (Version None)
Quarter: 2009Q4

REPORT INFORMATION
  Report Type: 
  Country: None (occurrence: None)
  Receive Date: 20091112
  Receipt Date: 20091030
  Transmission Date: 20100525
  Serious: Yes (Hospitalization)
  Sender: FDA-Public Use
  Company Number: PHHY2009CH47093

PATIENT
  Age: 35 Year
  Sex: Female

DRUGS (5)
  1. LEPONEX [Suspect]
     Indication: SCHIZOPHRENIA
     Dosage: 650 MG/D
  2. LEPONEX [Suspect]
     Dosage: UNK
     Dates: start: 20070401
  3. LEXOTANIL [Concomitant]
     Dosage: 3 MG/DAY
  4. TRANSIPEG [Concomitant]
     Dosage: UNK
  5. MOTILIUM [Concomitant]
     Dosage: UNK

REACTIONS (2)
  - ELECTROCARDIOGRAM QT PROLONGED [None]
  - TONIC CONVULSION [None]
